FAERS Safety Report 24547519 (Version 2)
Quarter: 2024Q4

REPORT INFORMATION
  Report Type: Report from Study
  Country: US (occurrence: US)
  Receive Date: 20241025
  Receipt Date: 20241030
  Transmission Date: 20250114
  Serious: Yes (Hospitalization)
  Sender: ROCHE
  Company Number: US-ROCHE-10000114231

PATIENT
  Age: 66 Year
  Sex: Female

DRUGS (6)
  1. OCREVUS [Suspect]
     Active Substance: OCRELIZUMAB
     Indication: Relapsing multiple sclerosis
     Route: 042
  2. BACLOFEN [Concomitant]
     Active Substance: BACLOFEN
  3. GABAPENTIN [Concomitant]
     Active Substance: GABAPENTIN
  4. BUPROPION [Concomitant]
     Active Substance: BUPROPION
  5. LISINOPRIL [Concomitant]
     Active Substance: LISINOPRIL
  6. AMLODIPINE [Concomitant]
     Active Substance: AMLODIPINE BESYLATE

REACTIONS (8)
  - Fall [Unknown]
  - Upper limb fracture [Unknown]
  - Swelling [Recovered/Resolved]
  - Blister [Recovered/Resolved]
  - COVID-19 [Recovered/Resolved]
  - Myalgia [Recovered/Resolved]
  - Fatigue [Recovered/Resolved]
  - Off label use [Unknown]

NARRATIVE: CASE EVENT DATE: 20200101
